FAERS Safety Report 7557000-2 (Version None)
Quarter: 2011Q2

REPORT INFORMATION
  Report Type: 
  Country: None (occurrence: None)
  Receive Date: 20110620
  Receipt Date: 20110615
  Transmission Date: 20111010
  Serious: Yes (Death)
  Sender: FDA-Public Use
  Company Number: PHHY2011BR52887

PATIENT
  Sex: Female
  Weight: 60 kg

DRUGS (8)
  1. SIMVASTATIN [Concomitant]
     Indication: BLOOD CHOLESTEROL INCREASED
     Dosage: 1 DF, A DAY
     Route: 048
  2. LOSARTAN POTASSIUM [Concomitant]
     Indication: HYPERTENSION
     Dosage: 1 DF, IN THE MORNING
     Route: 048
  3. MODURETIC 5-50 [Concomitant]
     Indication: HYPERTENSION
     Dosage: 1 DF/DAY
     Route: 048
  4. GERIATON [Concomitant]
     Indication: HYPOVITAMINOSIS
     Dosage: 1 DF, A DAY
     Route: 048
  5. EXELON [Suspect]
     Indication: MEMORY IMPAIRMENT
     Dosage: 9MG/5CM2, ONE PATCH PER DAY
     Route: 062
  6. GLUCOVANCE [Concomitant]
     Indication: DIABETES MELLITUS
     Dosage: 1 DF, TID
     Route: 048
  7. VENALOT (TROXERUTIN/COUMARIN) [Concomitant]
     Dosage: 1 DF/DAY
     Route: 048
  8. SOMALGIN [Concomitant]
     Dosage: 1 DF, AFTER LUNC
     Route: 048

REACTIONS (2)
  - RESPIRATORY FAILURE [None]
  - CARDIAC FAILURE [None]
